FAERS Safety Report 5843843-X (Version None)
Quarter: 2008Q3

REPORT INFORMATION
  Report Type: 
  Country: None (occurrence: None)
  Receive Date: 20080813
  Receipt Date: 20080805
  Transmission Date: 20090109
  Serious: Yes (Other)
  Sender: FDA-Public Use
  Company Number: PHEH1999US04010

PATIENT
  Sex: Female

DRUGS (13)
  1. LAMISIL [Suspect]
     Indication: ONYCHOMYCOSIS
     Dosage: 250 MG BID QD EVERY OTHER WEEK - PULSE DOSE
     Route: 048
  2. PREVACID [Concomitant]
  3. PRILOSEC [Concomitant]
     Indication: GASTROOESOPHAGEAL REFLUX DISEASE
  4. IBUPROFEN TABLETS [Concomitant]
  5. GLYBURIDE [Concomitant]
  6. CALCIUM WITH VITAMIN D [Concomitant]
  7. GLIPIZIDE [Concomitant]
     Indication: DIABETES MELLITUS
  8. METFORMIN HCL [Concomitant]
  9. LIPITOR [Concomitant]
  10. GABAPENTIN [Concomitant]
     Indication: NEUROPATHY PERIPHERAL
  11. ASPIRIN [Concomitant]
  12. VITAMIN CAP [Concomitant]
  13. ZOCOR [Concomitant]
     Indication: GASTROOESOPHAGEAL REFLUX DISEASE

REACTIONS (9)
  - DEAFNESS [None]
  - DIZZINESS [None]
  - FLATULENCE [None]
  - GAIT DISTURBANCE [None]
  - HEADACHE [None]
  - HYPERACUSIS [None]
  - NAUSEA [None]
  - STOMACH DISCOMFORT [None]
  - TINNITUS [None]
